FAERS Safety Report 17791030 (Version 1)
Quarter: 2020Q2

REPORT INFORMATION
  Report Type: Report from Study
  Country: None (occurrence: US)
  Receive Date: 20200514
  Receipt Date: 20200514
  Transmission Date: 20200714
  Serious: Yes (Hospitalization)
  Sender: FDA-Public Use
  Company Number: US-ABBVIE-20K-163-3284307-00

PATIENT
  Age: 58 Year
  Sex: Female
  Weight: 49.49 kg

DRUGS (6)
  1. MOTRIN [Concomitant]
     Active Substance: IBUPROFEN
     Indication: NECK PAIN
  2. HUMIRA [Suspect]
     Active Substance: ADALIMUMAB
     Route: 058
     Dates: start: 202002
  3. HUMIRA [Suspect]
     Active Substance: ADALIMUMAB
     Indication: CROHN^S DISEASE
     Route: 058
     Dates: start: 201103
  4. HUMIRA [Suspect]
     Active Substance: ADALIMUMAB
     Route: 058
  5. ATIVAN [Concomitant]
     Active Substance: LORAZEPAM
     Indication: MUSCULOSKELETAL DISCOMFORT
  6. TYLENOL [Concomitant]
     Active Substance: ACETAMINOPHEN
     Indication: NECK PAIN

REACTIONS (6)
  - Weight decreased [Unknown]
  - Feeling abnormal [Unknown]
  - Abdominal pain [Recovered/Resolved]
  - Product dispensing error [Unknown]
  - Dizziness [Unknown]
  - Unevaluable event [Unknown]

NARRATIVE: CASE EVENT DATE: 20200319
